FAERS Safety Report 17910046 (Version 9)
Quarter: 2022Q1

REPORT INFORMATION
  Report Type: Report from Study
  Country: US (occurrence: None)
  Receive Date: 20200617
  Receipt Date: 20220127
  Transmission Date: 20220423
  Serious: Yes (Life-Threatening, Hospitalization)
  Sender: FDA-Public Use
  Company Number: US-ROCHE-2619753

PATIENT
  Age: 61 Year
  Sex: Female
  Weight: 39.3 kg

DRUGS (3)
  1. COBIMETINIB [Suspect]
     Active Substance: COBIMETINIB
     Indication: Non-small cell lung cancer
     Dosage: DAY 1-21 IN A 28 DAY CYCLE?MOST RECENT DOSE PRIOR TO ADVERSE EVENT ONSET WAS ON 24/MAY/2020.
     Route: 048
     Dates: start: 20200512, end: 20200526
  2. LEVOTHYROXINE [Concomitant]
     Active Substance: LEVOTHYROXINE
     Indication: Hypothyroidism
     Dosage: 25 UNIT NOT REPORTED
     Route: 051
     Dates: start: 20190107
  3. ATIVAN [Concomitant]
     Active Substance: LORAZEPAM
     Indication: Prophylaxis
     Dosage: 0.5
     Route: 048
     Dates: start: 20200512

REACTIONS (3)
  - Haemoptysis [Recovered/Resolved]
  - Acute myocardial infarction [Recovered/Resolved]
  - Cardiac failure acute [Recovered/Resolved]

NARRATIVE: CASE EVENT DATE: 20200524
